FAERS Safety Report 7905750-8 (Version None)
Quarter: 2011Q4

REPORT INFORMATION
  Report Type: 
  Country: None (occurrence: None)
  Receive Date: 20111108
  Receipt Date: 20111026
  Transmission Date: 20120403
  Serious: Yes (Hospitalization)
  Sender: FDA-Public Use
  Company Number: 1000021226

PATIENT
  Age: 56 Year
  Sex: Female
  Weight: 65 kg

DRUGS (11)
  1. IMOVANE (ZOPICLONE) (ZOPICLONE) [Concomitant]
  2. NEXIUM [Concomitant]
  3. DAFALGAN (PARACETAMOL) (PARACETAMOL) [Concomitant]
  4. STABLON (TIANEPTINE SODIUM) (TIANEPTINE SODIUM) [Concomitant]
  5. LEXOMIL (BROMAZEPAM) (BROMAZEPAM) [Concomitant]
  6. VENTOLINE (SALBUTAMOL SULFATE) (SALBUTAMOL SULFATE) [Concomitant]
  7. MILNACIPRAN (MILNACIPRAN HYDROCHLORIDE) (50 MILLIGRAM, CAPSULES) [Suspect]
     Indication: DEPRESSION
     Dosage: 100 MG (50 MG,2 IN 1 D),ORAL ; 250 MG,ORAL ; 200 OR 250 MG I NALTERNATION,ORAL
     Route: 048
     Dates: start: 20061102
  8. MILNACIPRAN (MILNACIPRAN HYDROCHLORIDE) (50 MILLIGRAM, CAPSULES) [Suspect]
     Indication: DEPRESSION
     Dosage: 100 MG (50 MG,2 IN 1 D),ORAL ; 250 MG,ORAL ; 200 OR 250 MG I NALTERNATION,ORAL
     Route: 048
     Dates: end: 20101120
  9. MILNACIPRAN (MILNACIPRAN HYDROCHLORIDE) (50 MILLIGRAM, CAPSULES) [Suspect]
     Indication: DEPRESSION
     Dosage: 100 MG (50 MG,2 IN 1 D),ORAL ; 250 MG,ORAL ; 200 OR 250 MG I NALTERNATION,ORAL
     Route: 048
     Dates: start: 20050511
  10. ABILIFY (ARIPIPRAZOLE) (ARIPIPRAZOLE) [Concomitant]
  11. ATARAX [Concomitant]

REACTIONS (4)
  - MENINGORRHAGIA [None]
  - NECK PAIN [None]
  - OVERDOSE [None]
  - BLOOD GLUCOSE DECREASED [None]
